FAERS Safety Report 9045172 (Version 2)
Quarter: 2013Q1

REPORT INFORMATION
  Report Type: Spontaneous
  Country: CA (occurrence: CA)
  Receive Date: 20130130
  Receipt Date: 20130207
  Transmission Date: 20140127
  Serious: Yes (Death, Hospitalization, Other)
  Sender: FDA-Public Use
  Company Number: CA-CELGENEUS-028-21880-12081425

PATIENT
  Age: 64 None
  Sex: Male
  Weight: 80.2 kg

DRUGS (18)
  1. REVLIMID [Suspect]
     Indication: PLASMA CELL MYELOMA
     Dosage: 25 MILLIGRAM
     Route: 048
     Dates: start: 20120126, end: 20120613
  2. DEXAMETHASONE [Suspect]
     Indication: PLASMA CELL MYELOMA
     Dosage: 40 MILLIGRAM
     Route: 048
     Dates: start: 20120126, end: 20120613
  3. ELOTUZUMAB [Suspect]
     Indication: PLASMA CELL MYELOMA
     Route: 065
  4. PAMIDRONATE [Concomitant]
     Indication: ADVERSE EVENT
     Route: 065
     Dates: start: 20120612, end: 20120612
  5. ANTIBIOTICS [Concomitant]
     Indication: ADVERSE EVENT
     Route: 065
     Dates: start: 20120130, end: 20120202
  6. MOXIFLOXACIN [Concomitant]
     Indication: ADVERSE EVENT
     Route: 065
     Dates: start: 20120314, end: 20120324
  7. G-CSF [Concomitant]
     Indication: ADVERSE EVENT
     Route: 065
     Dates: start: 20120302
  8. IBUPROFEN [Concomitant]
     Indication: ADVERSE EVENT
     Route: 065
     Dates: start: 20120219
  9. PANTOPRAZOLE [Concomitant]
     Indication: ADVERSE EVENT
     Route: 065
     Dates: start: 20120207
  10. K-DUR [Concomitant]
     Indication: ADVERSE EVENT
     Route: 065
     Dates: start: 20120201, end: 20120215
  11. BIAXIN [Concomitant]
     Indication: PRODUCT USED FOR UNKNOWN INDICATION
     Route: 065
     Dates: start: 20120203, end: 20120210
  12. SODIUM [Concomitant]
     Indication: ADVERSE EVENT
     Route: 065
     Dates: start: 20120130, end: 20120205
  13. ASA [Concomitant]
     Indication: PRODUCT USED FOR UNKNOWN INDICATION
     Route: 065
     Dates: start: 20120126
  14. GARLIC [Concomitant]
     Indication: PRODUCT USED FOR UNKNOWN INDICATION
     Route: 065
     Dates: start: 20090101
  15. OMEGA 3 [Concomitant]
     Indication: PRODUCT USED FOR UNKNOWN INDICATION
     Route: 065
     Dates: start: 20110101
  16. VITAMIN B 100 [Concomitant]
     Indication: PRODUCT USED FOR UNKNOWN INDICATION
     Route: 065
     Dates: start: 20020101
  17. MULTIVITAMIN [Concomitant]
     Indication: PRODUCT USED FOR UNKNOWN INDICATION
     Route: 065
     Dates: start: 20020101
  18. PACKED RED BLOOD CELLS [Concomitant]
     Indication: PRODUCT USED FOR UNKNOWN INDICATION
     Route: 041
     Dates: start: 20120120, end: 20120120

REACTIONS (1)
  - Plasma cell myeloma [Fatal]
